FAERS Safety Report 8958397 (Version 1)
Quarter: 2012Q4

REPORT INFORMATION
  Report Type: 
  Country: GB (occurrence: GB)
  Receive Date: 20121210
  Receipt Date: 20121210
  Transmission Date: 20130627
  Serious: Yes (Hospitalization)
  Sender: FDA-Public Use
  Company Number: GB-GLAXOSMITHKLINE-B0850024A

PATIENT
  Age: 33 Year
  Sex: Female
  Weight: 60 kg

DRUGS (19)
  1. ACICLOVIR [Suspect]
     Indication: ORAL HERPES
     Route: 048
     Dates: start: 20121103, end: 20121108
  2. CEFALEXIN [Suspect]
     Indication: IMPETIGO
     Route: 048
     Dates: start: 20121103, end: 20121108
  3. BUSCOPAN [Concomitant]
     Dosage: 60MG Per day
  4. PROCHLORPERAZINE MALEATE [Concomitant]
     Dosage: 9MG Per day
  5. MAXITROL (EYE OINTMENT) [Concomitant]
  6. CANESTEN [Concomitant]
  7. PULMICORT [Concomitant]
     Route: 055
  8. DUROGESIC PATCH [Concomitant]
  9. INDOMETACIN [Concomitant]
  10. NUTRIZYM [Concomitant]
     Dosage: 1IUAX Per day
  11. SUCRALFATE [Concomitant]
     Dosage: 20ML Per day
  12. VENTOLIN [Concomitant]
     Route: 055
  13. ESOMEPRAZOLE [Concomitant]
     Dosage: 40MG Per day
  14. CALCEOS [Concomitant]
     Dosage: 2IUAX Per day
  15. ETANERCEPT [Concomitant]
     Dosage: 25MG Two times per week
  16. TYLEX [Concomitant]
     Dosage: 8IUAX Per day
  17. SYSTANE [Concomitant]
  18. DUROGESIC PATCH [Concomitant]
     Dosage: 36MCG Per day
  19. LUBRICANT (UNSPECIFIED) [Concomitant]

REACTIONS (1)
  - Pancreatitis [Recovering/Resolving]
